FAERS Safety Report 9353727 (Version 2)
Quarter: 2013Q3

REPORT INFORMATION
  Report Type: Spontaneous
  Country: US (occurrence: US)
  Receive Date: 20130618
  Receipt Date: 20130710
  Transmission Date: 20140515
  Serious: Yes (Other)
  Sender: FDA-Public Use
  Company Number: US-PFIZER INC-2010US-39505

PATIENT
  Age: 21 Year
  Sex: Female

DRUGS (2)
  1. VERAPAMIL HCL [Suspect]
     Indication: VENTRICULAR FIBRILLATION
     Dosage: 240 MG, 1X/DAY
     Route: 065
  2. AMIODARONE HCL [Suspect]
     Indication: VENTRICULAR FIBRILLATION
     Dosage: 200 MG, 1X/DAY
     Route: 065

REACTIONS (1)
  - Abortion spontaneous [Unknown]
